FAERS Safety Report 12683802 (Version 1)
Quarter: 2016Q3

REPORT INFORMATION
  Report Type: Spontaneous
  Country: US (occurrence: None)
  Receive Date: 20160824
  Receipt Date: 20160824
  Transmission Date: 20161109
  Serious: Yes (Other)
  Sender: FDA-Public Use
  Company Number: None

PATIENT
  Age: 68 Year
  Sex: Male

DRUGS (8)
  1. HUMIRA [Suspect]
     Active Substance: ADALIMUMAB
     Indication: ANKYLOSING SPONDYLITIS
     Route: 058
     Dates: start: 20150323, end: 20160823
  2. ELIQUIS [Concomitant]
     Active Substance: APIXABAN
  3. PRAVASTATIN. [Concomitant]
     Active Substance: PRAVASTATIN
  4. IBUPROFEN. [Concomitant]
     Active Substance: IBUPROFEN
  5. FOLIC ACID. [Concomitant]
     Active Substance: FOLIC ACID
  6. DILTIAZEM. [Concomitant]
     Active Substance: DILTIAZEM
  7. HUMIRA [Suspect]
     Active Substance: ADALIMUMAB
     Indication: RHEUMATOID ARTHRITIS
     Route: 058
     Dates: start: 20150323, end: 20160823
  8. METHOTREXATE. [Concomitant]
     Active Substance: METHOTREXATE

REACTIONS (1)
  - Basal cell carcinoma [None]

NARRATIVE: CASE EVENT DATE: 20160818
